FAERS Safety Report 4778838-0 (Version None)
Quarter: 2005Q3

REPORT INFORMATION
  Report Type: 
  Country: None (occurrence: None)
  Receive Date: 20050922
  Receipt Date: 20050914
  Transmission Date: 20060218
  Serious: Yes (Other)
  Sender: FDA-Public Use
  Company Number: GB-2005-019168

PATIENT
  Age: 60 Year
  Sex: Male
  Weight: 73 kg

DRUGS (1)
  1. SOTALOL HCL [Suspect]
     Dosage: 40 MG, 1X/DAY, ORAL
     Route: 048

REACTIONS (2)
  - CHROMATURIA [None]
  - URTICARIA [None]
